FAERS Safety Report 15958742 (Version 1)
Quarter: 2019Q1

REPORT INFORMATION
  Report Type: Report from Study
  Country: None (occurrence: CO)
  Receive Date: 20190213
  Receipt Date: 20190213
  Transmission Date: 20190417
  Serious: Yes (Other)
  Sender: FDA-Public Use
  Company Number: CO-ABBVIE-19K-036-2630369-00

PATIENT
  Age: 63 Year
  Sex: Male
  Weight: 78 kg

DRUGS (2)
  1. HUMIRA [Suspect]
     Active Substance: ADALIMUMAB
     Indication: ANKYLOSING SPONDYLITIS
     Route: 058
     Dates: start: 20120608
  2. HUMIRA [Suspect]
     Active Substance: ADALIMUMAB
     Dosage: HUIMRA AC
     Route: 058
     Dates: end: 20181107

REACTIONS (5)
  - Umbilical hernia [Unknown]
  - Inflammation [Recovered/Resolved]
  - Gastritis [Recovered/Resolved]
  - Inguinal hernia [Unknown]
  - Dysphagia [Recovered/Resolved]

NARRATIVE: CASE EVENT DATE: 201601
